FAERS Safety Report 5701169-9 (Version None)
Quarter: 2008Q2

REPORT INFORMATION
  Report Type: 
  Country: None (occurrence: None)
  Receive Date: 20080407
  Receipt Date: 20080331
  Transmission Date: 20081010
  Serious: Yes (Hospitalization)
  Sender: FDA-Public Use
  Company Number: L08-ITA-01285-01

PATIENT
  Age: 27 Year
  Sex: Female

DRUGS (7)
  1. CARBAMAZEPINE [Suspect]
     Indication: AGITATION
  2. CARBAMAZEPINE [Suspect]
     Indication: PSYCHOTIC DISORDER
  3. LEVOSULPIRIDE [Suspect]
     Indication: AGITATION
  4. LEVOSULPIRIDE [Suspect]
     Indication: PSYCHOTIC DISORDER
  5. VALPROIC ACID [Suspect]
     Indication: AGITATION
  6. VALPROIC ACID [Suspect]
     Indication: PSYCHOTIC DISORDER
  7. LEVOTHYROXINE SODIUM [Concomitant]

REACTIONS (10)
  - AGITATION [None]
  - DIABETIC KETOACIDOSIS [None]
  - HAEMOGLOBIN DECREASED [None]
  - HYPOTHYROIDISM [None]
  - MEAN CELL VOLUME ABNORMAL [None]
  - MYXOEDEMA COMA [None]
  - PALLOR [None]
  - PLATELET COUNT INCREASED [None]
  - PSYCHOTIC DISORDER [None]
  - WHITE BLOOD CELL COUNT DECREASED [None]
